FAERS Safety Report 6567967-7 (Version None)
Quarter: 2010Q1

REPORT INFORMATION
  Report Type: 
  Country: None (occurrence: None)
  Receive Date: 20100203
  Receipt Date: 20100119
  Transmission Date: 20100710
  Serious: Yes (Other)
  Sender: FDA-Public Use
  Company Number: DK-ASTRAZENECA-2010SE02878

PATIENT
  Sex: Female
  Weight: 62 kg

DRUGS (2)
  1. NAROPIN [Suspect]
     Indication: ANAESTHESIA
     Dosage: 1 MG/ML
     Route: 008
     Dates: start: 20090719, end: 20090719
  2. SUFENTANIL -UNK MAH [Suspect]
     Indication: ANAESTHESIA
     Dosage: 0.5MCG/ML
     Route: 008
     Dates: start: 20090719, end: 20090719

REACTIONS (4)
  - BACK PAIN [None]
  - DYSAESTHESIA [None]
  - HYPOAESTHESIA [None]
  - MUSCULAR WEAKNESS [None]
